FAERS Safety Report 15502007 (Version 1)
Quarter: 2018Q4

REPORT INFORMATION
  Report Type: Spontaneous
  Country: US (occurrence: US)
  Receive Date: 20181015
  Receipt Date: 20181015
  Transmission Date: 20190205
  Serious: No
  Sender: FDA-Public Use
  Company Number: US-AMGEN-USASP2017182558

PATIENT
  Sex: Male

DRUGS (3)
  1. EPOGEN [Suspect]
     Active Substance: ERYTHROPOIETIN
     Indication: PRODUCT USED FOR UNKNOWN INDICATION
     Dosage: UNK
     Route: 065
  2. EPOGEN [Suspect]
     Active Substance: ERYTHROPOIETIN
     Dosage: UNK (DOSE WAS INCREASED BY 10%)
     Route: 065
  3. EPOGEN [Suspect]
     Active Substance: ERYTHROPOIETIN
     Dosage: UNK (DOSE WAS INCREASED BY 25%)
     Route: 065

REACTIONS (2)
  - Haemoglobin decreased [Recovered/Resolved]
  - Drug hypersensitivity [Recovered/Resolved]
